FAERS Safety Report 8156113-4 (Version None)
Quarter: 2012Q1

REPORT INFORMATION
  Report Type: 
  Country: None (occurrence: None)
  Receive Date: 20120221
  Receipt Date: 20120221
  Transmission Date: 20120608
  Serious: No
  Sender: FDA-Public Use
  Company Number: None

PATIENT
  Sex: Female

DRUGS (1)
  1. SUTENT [Suspect]
     Indication: RENAL CANCER
     Dosage: 50MG QD PO
     Route: 048
     Dates: start: 20120101

REACTIONS (4)
  - APHAGIA [None]
  - ULCER HAEMORRHAGE [None]
  - DEHYDRATION [None]
  - DIARRHOEA [None]
